FAERS Safety Report 15737041 (Version 1)
Quarter: 2018Q4

REPORT INFORMATION
  Report Type: Spontaneous
  Country: US (occurrence: US)
  Receive Date: 20181218
  Receipt Date: 20181218
  Transmission Date: 20190205
  Serious: Yes (Hospitalization, Other)
  Sender: FDA-Public Use
  Company Number: US-VERTEX PHARMACEUTICALS-2018-009513

PATIENT
  Age: 22 Year
  Sex: Female

DRUGS (26)
  1. ONDANSETRON [Concomitant]
     Active Substance: ONDANSETRON
  2. SYMDEKO [Suspect]
     Active Substance: IVACAFTOR\TEZACAFTOR
     Indication: CYSTIC FIBROSIS
     Dosage: 100MG TEZACAFTOR/150MG IVACAFTOR AM; 150MG IVACAFTOR PM
     Route: 048
     Dates: start: 20180411
  3. GINSENG                            /01384001/ [Concomitant]
     Active Substance: ASIAN GINSENG
  4. LORAZEPAM. [Concomitant]
     Active Substance: LORAZEPAM
  5. MELATONIN [Concomitant]
     Active Substance: MELATONIN
  6. CAYSTON [Concomitant]
     Active Substance: AZTREONAM
  7. ZENPEP [Concomitant]
     Active Substance: PANCRELIPASE AMYLASE\PANCRELIPASE LIPASE\PANCRELIPASE PROTEASE
  8. CULTURELLE [Concomitant]
     Active Substance: LACTOBACILLUS RHAMNOSUS
  9. MAGNESIUM [Concomitant]
     Active Substance: MAGNESIUM
  10. CALCIUM CARBONATE. [Concomitant]
     Active Substance: CALCIUM CARBONATE
  11. PREDNISONE. [Concomitant]
     Active Substance: PREDNISONE
  12. AZITHROMYCIN ANHYDROUS. [Concomitant]
     Active Substance: AZITHROMYCIN ANHYDROUS
  13. COQ 10 [Concomitant]
     Active Substance: UBIDECARENONE
  14. LANTUS [Concomitant]
     Active Substance: INSULIN GLARGINE
  15. NOVOLOG [Concomitant]
     Active Substance: INSULIN ASPART
  16. PULMOZYME [Concomitant]
     Active Substance: DORNASE ALFA
  17. LEVOFLOXACIN. [Concomitant]
     Active Substance: LEVOFLOXACIN
  18. MINOCYCLINE [Concomitant]
     Active Substance: MINOCYCLINE\MINOCYCLINE HYDROCHLORIDE
  19. SALINE                             /00075401/ [Concomitant]
     Active Substance: SODIUM CHLORIDE
     Route: 045
  20. VITAMIN E                          /00110501/ [Concomitant]
     Active Substance: TOCOPHEROL
  21. VITAMIN K [Concomitant]
     Active Substance: PHYTONADIONE
  22. ZOLOFT [Concomitant]
     Active Substance: SERTRALINE HYDROCHLORIDE
  23. FLONASE                            /00908302/ [Concomitant]
     Active Substance: MOMETASONE FUROATE
  24. MEPHYTON [Concomitant]
     Active Substance: PHYTONADIONE
  25. ALBUTEROL                          /00139501/ [Concomitant]
     Active Substance: ALBUTEROL
  26. OMEGA 3                            /01333901/ [Concomitant]
     Active Substance: FISH OIL\TOCOPHEROL

REACTIONS (2)
  - Sinus operation [Unknown]
  - Cystic fibrosis respiratory infection suppression [Unknown]

NARRATIVE: CASE EVENT DATE: 20181123
